FAERS Safety Report 4351373-X (Version None)
Quarter: 2004Q2

REPORT INFORMATION
  Report Type: 
  Country: None (occurrence: None)
  Receive Date: 20040430
  Receipt Date: 20040430
  Transmission Date: 20050107
  Serious: Yes (Life-Threatening)
  Sender: FDA-Public Use
  Company Number: None

PATIENT
  Age: 24 Year
  Sex: Female

DRUGS (12)
  1. KETORALAC [Suspect]
     Indication: HEADACHE
     Dosage: 30MG IV Q8HRS
     Route: 042
     Dates: start: 20031015, end: 20031016
  2. PHENERGAN [Concomitant]
  3. IMITREX [Concomitant]
  4. AMBIEN [Concomitant]
  5. TERAZOL 7 [Concomitant]
  6. DIHYDROERGOTAMINE MESYLATE [Concomitant]
  7. ATIVAN [Concomitant]
  8. REGLAN [Concomitant]
  9. REGULAR INSULIN [Concomitant]
  10. ACCUPRIL [Concomitant]
  11. INDERAL LA [Concomitant]
  12. ACTOS [Concomitant]

REACTIONS (1)
  - GENERALISED OEDEMA [None]
